FAERS Safety Report 9001063 (Version 1)
Quarter: 2013Q1

REPORT INFORMATION
  Report Type: Spontaneous
  Country: FR (occurrence: FR)
  Receive Date: 20130107
  Receipt Date: 20130107
  Transmission Date: 20140127
  Serious: Yes (Hospitalization)
  Sender: FDA-Public Use
  Company Number: FR-BAYER-2013-001292

PATIENT
  Age: 84 Year
  Sex: Female

DRUGS (7)
  1. CIFLOX [Suspect]
     Dosage: 400 MG, UNK
     Dates: start: 20121106, end: 20121112
  2. TAZOCILLINE [Suspect]
     Dosage: 4 G, BID
     Dates: start: 20121112, end: 20121127
  3. INEXIUM [Concomitant]
     Dosage: 40 MG, UNK
  4. SERESTA [Concomitant]
     Dosage: 75 MG, UNK
  5. AMLOR [Concomitant]
  6. FORLAX [Concomitant]
  7. RISPERDAL [Concomitant]

REACTIONS (2)
  - Metabolic encephalopathy [Recovered/Resolved]
  - Hallucination, visual [Recovered/Resolved]
